FAERS Safety Report 4469768-2 (Version None)
Quarter: 2004Q4

REPORT INFORMATION
  Report Type: 
  Country: None (occurrence: None)
  Receive Date: 20041008
  Receipt Date: 20040729
  Transmission Date: 20050328
  Serious: Yes (Hospitalization)
  Sender: FDA-Public Use
  Company Number: JP-ROCHE-375894

PATIENT
  Age: 35 Year
  Sex: Female
  Weight: 52 kg

DRUGS (7)
  1. ROCEPHIN [Suspect]
     Indication: PNEUMONIA
     Dosage: ADMINISTERED AT 15:00 HRS EST.
     Route: 050
     Dates: start: 20031128, end: 20031128
  2. FLOMOX [Concomitant]
     Indication: PNEUMONIA
     Route: 048
     Dates: start: 20031128, end: 20031128
  3. COLD MEDICINE NOS [Concomitant]
     Indication: PNEUMONIA
     Dosage: DRUG NAME: PL (NON-PYRINE PREPARATION FOR COLD SYNDROME)
     Route: 048
     Dates: start: 20031128, end: 20031128
  4. CODEINE PHOSPHATE [Concomitant]
     Indication: PNEUMONIA
     Dosage: DOSAGE REGIMEN: UK OD
     Route: 048
     Dates: start: 20031128, end: 20031128
  5. VOLTAREN [Concomitant]
     Indication: PNEUMONIA
     Dosage: DOSAGE REGIMEN: UK
     Route: 054
     Dates: start: 20031128, end: 20031129
  6. LOXONIN [Concomitant]
     Indication: PNEUMONIA
     Dosage: LOXOPROFEN SODIUM
     Dates: end: 20031129
  7. VOLTAREN [Concomitant]
     Dosage: DICLOFENAC SODIUM
     Dates: end: 20031129

REACTIONS (2)
  - LYMPHOCYTE STIMULATION TEST POSITIVE [None]
  - STEVENS-JOHNSON SYNDROME [None]
